FAERS Safety Report 5611366-9 (Version None)
Quarter: 2008Q1

REPORT INFORMATION
  Report Type: 
  Country: None (occurrence: None)
  Receive Date: 20080201
  Receipt Date: 20080118
  Transmission Date: 20080703
  Serious: Yes (Other)
  Sender: FDA-Public Use
  Company Number: JP-PFIZER INC-2008007041

PATIENT
  Age: 60 Year
  Sex: Female

DRUGS (3)
  1. XALATAN [Suspect]
     Indication: GLAUCOMA
     Route: 047
  2. SANCOBA [Concomitant]
     Route: 047
  3. DRUG, UNSPECIFIED [Concomitant]

REACTIONS (4)
  - EYE IRRITATION [None]
  - EYE PAIN [None]
  - EYELID FUNCTION DISORDER [None]
  - SUPERFICIAL INJURY OF EYE [None]
